FAERS Safety Report 11796890 (Version 1)
Quarter: 2015Q4

REPORT INFORMATION
  Report Type: Spontaneous
  Country: US (occurrence: None)
  Receive Date: 20151202
  Receipt Date: 20151202
  Transmission Date: 20160305
  Serious: No
  Sender: FDA-Public Use
  Company Number: None

PATIENT
  Age: 64 Year
  Sex: Female
  Weight: 49.9 kg

DRUGS (3)
  1. VITAMIN D [Concomitant]
     Active Substance: CHOLECALCIFEROL
  2. CALCIUM [Concomitant]
     Active Substance: CALCIUM
  3. PROLIA [Suspect]
     Active Substance: DENOSUMAB
     Indication: OSTEOPOROSIS
     Dosage: 1 INJECTIONS 1 EVERY 6 MONTHS ARM IN JECTION
     Dates: start: 20151023

REACTIONS (7)
  - Lip dry [None]
  - Cheilitis [None]
  - Back pain [None]
  - Lip swelling [None]
  - Arthralgia [None]
  - Rash [None]
  - Chapped lips [None]

NARRATIVE: CASE EVENT DATE: 20151023
